FAERS Safety Report 10173517 (Version 1)
Quarter: 2014Q2

REPORT INFORMATION
  Report Type: Spontaneous
  Country: US (occurrence: US)
  Receive Date: 20140515
  Receipt Date: 20140515
  Transmission Date: 20141212
  Serious: Yes (Other)
  Sender: FDA-Public Use
  Company Number: US-BEH-2014042508

PATIENT
  Sex: Female

DRUGS (1)
  1. HIZENTRA [Suspect]
     Dosage: ??-???-2013
     Route: 058

REACTIONS (8)
  - Cellulitis [Not Recovered/Not Resolved]
  - Surgery [Not Recovered/Not Resolved]
  - Surgery [Not Recovered/Not Resolved]
  - Pyrexia [Not Recovered/Not Resolved]
  - Fatigue [Not Recovered/Not Resolved]
  - Infusion site extravasation [Not Recovered/Not Resolved]
  - Asthma [Not Recovered/Not Resolved]
  - Pyrexia [Not Recovered/Not Resolved]
